FAERS Safety Report 7638535-0 (Version None)
Quarter: 2011Q3

REPORT INFORMATION
  Report Type: 
  Country: None (occurrence: None)
  Receive Date: 20110727
  Receipt Date: 20110715
  Transmission Date: 20111222
  Serious: Yes (Other)
  Sender: FDA-Public Use
  Company Number: PHHY2011NZ64244

PATIENT
  Sex: Male

DRUGS (2)
  1. BENZTROPINE MESYLATE [Concomitant]
  2. CLOZARIL [Suspect]
     Indication: SCHIZOPHRENIA
     Dates: start: 20110524

REACTIONS (2)
  - SALIVARY HYPERSECRETION [None]
  - RETROGRADE EJACULATION [None]
